FAERS Safety Report 5039480-X (Version None)
Quarter: 2006Q2

REPORT INFORMATION
  Report Type: 
  Country: None (occurrence: None)
  Receive Date: 20060629
  Receipt Date: 20060524
  Transmission Date: 20061013
  Serious: Yes (Death)
  Sender: FDA-Public Use
  Company Number: US-BRISTOL-MYERS SQUIBB COMPANY-13390216

PATIENT
  Age: 60 Year
  Sex: Male

DRUGS (3)
  1. MEGACE [Suspect]
     Indication: INCREASED APPETITE
     Route: 048
     Dates: start: 20051201
  2. DURAGESIC-100 [Concomitant]
  3. ATIVAN [Concomitant]

REACTIONS (1)
  - METASTATIC CARCINOMA OF THE BLADDER [None]
